FAERS Safety Report 9361871 (Version 1)
Quarter: 2013Q2

REPORT INFORMATION
  Report Type: Spontaneous
  Country: US (occurrence: US)
  Receive Date: 20130621
  Receipt Date: 20130621
  Transmission Date: 20140414
  Serious: Yes (Other)
  Sender: FDA-Public Use
  Company Number: US-GLAXOSMITHKLINE-A1027701A

PATIENT
  Age: 70 Year
  Sex: Female

DRUGS (1)
  1. VOTRIENT [Suspect]
     Indication: CARCINOMA IN SITU
     Dosage: 200MG SEE DOSAGE TEXT
     Route: 065

REACTIONS (1)
  - Limb operation [Not Recovered/Not Resolved]
